FAERS Safety Report 25079375 (Version 1)
Quarter: 2025Q1

REPORT INFORMATION
  Report Type: Spontaneous
  Country: JP (occurrence: JP)
  Receive Date: 20250314
  Receipt Date: 20250314
  Transmission Date: 20250408
  Serious: Yes (Death, Hospitalization, Other)
  Sender: PFIZER
  Company Number: JP-PFIZER INC-PV202500030608

PATIENT
  Age: 6 Decade
  Sex: Female

DRUGS (5)
  1. SIROLIMUS [Suspect]
     Active Substance: SIROLIMUS
     Indication: Lymphangioleiomyomatosis
     Route: 065
  2. SIROLIMUS [Suspect]
     Active Substance: SIROLIMUS
     Indication: Lung transplant
  3. PREDNISOLONE [Concomitant]
     Active Substance: PREDNISOLONE
     Indication: Lymphangioleiomyomatosis
  4. TACROLIMUS [Concomitant]
     Active Substance: TACROLIMUS
     Indication: Lymphangioleiomyomatosis
  5. MYCOPHENOLATE MOFETIL [Concomitant]
     Active Substance: MYCOPHENOLATE MOFETIL
     Indication: Lymphangioleiomyomatosis

REACTIONS (3)
  - Herpes zoster disseminated [Fatal]
  - Hepatitis fulminant [Unknown]
  - Pseudomonas infection [Unknown]
